FAERS Safety Report 11863267 (Version 1)
Quarter: 2015Q4

REPORT INFORMATION
  Report Type: Spontaneous
  Country: US (occurrence: None)
  Receive Date: 20151222
  Receipt Date: 20151222
  Transmission Date: 20160305
  Serious: Yes (Other)
  Sender: FDA-Public Use
  Company Number: None

PATIENT
  Age: 54 Year
  Sex: Male
  Weight: 97.52 kg

DRUGS (8)
  1. FLAXSEED [Concomitant]
     Active Substance: FLAX SEED
  2. COQ10 [Concomitant]
     Active Substance: UBIDECARENONE
  3. FISH OIL [Concomitant]
     Active Substance: FISH OIL
  4. AMIODIPINE [Concomitant]
  5. D-3 [Concomitant]
     Active Substance: CHOLECALCIFEROL
  6. BENZONATATE. [Suspect]
     Active Substance: BENZONATATE
     Indication: COUGH
     Dosage: 1 CAPSULE 3 TIMES DAILY
     Route: 048
     Dates: start: 20151220
  7. BENZONATATE. [Suspect]
     Active Substance: BENZONATATE
     Indication: SECRETION DISCHARGE
     Dosage: 1 CAPSULE 3 TIMES DAILY
     Route: 048
     Dates: start: 20151220
  8. HCTZ [Concomitant]
     Active Substance: HYDROCHLOROTHIAZIDE

REACTIONS (6)
  - Blood pressure increased [None]
  - Initial insomnia [None]
  - Heart rate increased [None]
  - Sleep disorder [None]
  - Feeling abnormal [None]
  - Palpitations [None]

NARRATIVE: CASE EVENT DATE: 20151220
